FAERS Safety Report 18331318 (Version 1)
Quarter: 2020Q3

REPORT INFORMATION
  Report Type: Spontaneous
  Country: SE (occurrence: SE)
  Receive Date: 20200930
  Receipt Date: 20200930
  Transmission Date: 20201103
  Serious: Yes (Hospitalization)
  Sender: FDA-Public Use
  Company Number: SE-TAKEDA-2020TEU009321

PATIENT
  Age: 66 Year
  Sex: Male

DRUGS (1)
  1. LANZO [Suspect]
     Active Substance: LANSOPRAZOLE
     Indication: VOMITING
     Dosage: 15 MILLIGRAM, QD
     Route: 048
     Dates: start: 20200831, end: 20200902

REACTIONS (3)
  - Dyspnoea [Not Recovered/Not Resolved]
  - Peripheral swelling [Not Recovered/Not Resolved]
  - Petechiae [Not Recovered/Not Resolved]

NARRATIVE: CASE EVENT DATE: 20200902
